FAERS Safety Report 6137567-1 (Version None)
Quarter: 2009Q1

REPORT INFORMATION
  Report Type: 
  Country: None (occurrence: None)
  Receive Date: 20090331
  Receipt Date: 20090318
  Transmission Date: 20090719
  Serious: Yes (Life-Threatening)
  Sender: FDA-Public Use
  Company Number: GB-RANBAXY-2009RR-22920

PATIENT
  Age: 49 Year
  Sex: Male

DRUGS (13)
  1. AMITRIPTYLINE [Suspect]
     Indication: ANXIETY
     Dosage: 25 MG, QD
     Route: 048
     Dates: end: 20090226
  2. AMITRIPTYLINE [Suspect]
     Indication: MOOD SWINGS
  3. CITALOPRAM HYDROBROMIDE [Suspect]
     Indication: ANXIETY
     Dosage: 20 MG, QD
     Route: 048
     Dates: start: 20081101, end: 20090226
  4. CITALOPRAM HYDROBROMIDE [Suspect]
     Indication: MOOD SWINGS
  5. ENALAPRIL [Suspect]
     Indication: HYPERTENSION
     Dosage: 40 MG, UNK
     Route: 048
     Dates: end: 20090226
  6. INDAPAMIDE [Suspect]
     Indication: HYPERTENSION
     Dosage: 1.5 MG, QD
     Route: 048
     Dates: start: 20080601, end: 20090226
  7. OXCARBAZEPINE [Suspect]
     Indication: EPILEPSY
     Dosage: 1.2 G, BID
     Route: 048
     Dates: end: 20090226
  8. OXCARBAZEPINE [Suspect]
     Dosage: 300 MG, QD
     Dates: end: 20090226
  9. AMLODIPINE [Concomitant]
     Indication: HYPERTENSION
     Dosage: 10 MG, QD
     Route: 048
     Dates: start: 20080501, end: 20090226
  10. IBUPROFEN [Concomitant]
     Indication: PAIN
     Dosage: 40 MG, TID
     Route: 048
  11. PARACETAMOL [Concomitant]
     Indication: PAIN
     Dosage: 1 G, PRN
     Route: 048
  12. RANITIDINE [Concomitant]
     Dosage: 150 MG, QD
     Route: 048
     Dates: end: 20090226
  13. SIMVASTATIN [Concomitant]
     Indication: BLOOD CHOLESTEROL INCREASED
     Dosage: 20 MG, QD
     Route: 048

REACTIONS (2)
  - AGGRESSION [None]
  - CONFUSIONAL STATE [None]
